FAERS Safety Report 16033490 (Version 1)
Quarter: 2019Q1

REPORT INFORMATION
  Report Type: Spontaneous
  Country: US (occurrence: US)
  Receive Date: 20190305
  Receipt Date: 20190305
  Transmission Date: 20190418
  Serious: No
  Sender: FDA-Public Use
  Company Number: US-PRINSTON PHARMACEUTICAL INC.-2018PRN01215

PATIENT
  Sex: Female

DRUGS (16)
  1. VALSARTAN. [Suspect]
     Active Substance: VALSARTAN
     Indication: BLOOD GLUCOSE ABNORMAL
     Dosage: UNK UNK, 2X/DAY
     Route: 048
  2. VALSARTAN AND HYDROCHLOROTHIAZIDE [Suspect]
     Active Substance: HYDROCHLOROTHIAZIDE\VALSARTAN
     Indication: POLYURIA
  3. VALSARTAN AND HYDROCHLOROTHIAZIDE [Suspect]
     Active Substance: HYDROCHLOROTHIAZIDE\VALSARTAN
     Indication: BLOOD GLUCOSE ABNORMAL
     Dosage: UNK UNK, 2X/DAY
     Route: 048
  4. VALSARTAN. [Suspect]
     Active Substance: VALSARTAN
     Indication: POLYURIA
  5. VALSARTAN AND HYDROCHLOROTHIAZIDE [Suspect]
     Active Substance: HYDROCHLOROTHIAZIDE\VALSARTAN
     Indication: BLOOD GLUCOSE ABNORMAL
     Dosage: UNK UNK, 2X/DAY
     Route: 048
  6. VALSARTAN. [Suspect]
     Active Substance: VALSARTAN
     Indication: POLYURIA
  7. VALSARTAN. [Suspect]
     Active Substance: VALSARTAN
     Indication: BLOOD GLUCOSE ABNORMAL
     Dosage: UNK UNK, 2X/DAY
     Route: 048
  8. VALSARTAN AND HYDROCHLOROTHIAZIDE [Suspect]
     Active Substance: HYDROCHLOROTHIAZIDE\VALSARTAN
     Indication: BLOOD GLUCOSE ABNORMAL
     Dosage: UNK UNK, 2X/DAY
     Route: 048
  9. VALSARTAN AND HYDROCHLOROTHIAZIDE [Suspect]
     Active Substance: HYDROCHLOROTHIAZIDE\VALSARTAN
     Indication: POLYURIA
  10. VALSARTAN AND HYDROCHLOROTHIAZIDE [Suspect]
     Active Substance: HYDROCHLOROTHIAZIDE\VALSARTAN
     Indication: BLOOD GLUCOSE ABNORMAL
     Dosage: UNK UNK, 2X/DAY
     Route: 048
  11. VALSARTAN. [Suspect]
     Active Substance: VALSARTAN
     Indication: BLOOD GLUCOSE ABNORMAL
     Dosage: UNK UNK, 2X/DAY
     Route: 048
  12. VALSARTAN. [Suspect]
     Active Substance: VALSARTAN
     Indication: POLYURIA
  13. VALSARTAN. [Suspect]
     Active Substance: VALSARTAN
     Indication: POLYURIA
  14. VALSARTAN. [Suspect]
     Active Substance: VALSARTAN
     Indication: BLOOD GLUCOSE ABNORMAL
     Dosage: UNK UNK, 2X/DAY
  15. VALSARTAN AND HYDROCHLOROTHIAZIDE [Suspect]
     Active Substance: HYDROCHLOROTHIAZIDE\VALSARTAN
     Indication: POLYURIA
  16. VALSARTAN AND HYDROCHLOROTHIAZIDE [Suspect]
     Active Substance: HYDROCHLOROTHIAZIDE\VALSARTAN
     Indication: POLYURIA

REACTIONS (4)
  - Asthenia [Not Recovered/Not Resolved]
  - Fatigue [Not Recovered/Not Resolved]
  - Off label use [Not Recovered/Not Resolved]
  - Decreased interest [Not Recovered/Not Resolved]
